FAERS Safety Report 20417996 (Version 1)
Quarter: 2022Q1

REPORT INFORMATION
  Report Type: Report from Study
  Country: PH (occurrence: PH)
  Receive Date: 20220202
  Receipt Date: 20220202
  Transmission Date: 20220423
  Serious: Yes (Hospitalization)
  Sender: FDA-Public Use
  Company Number: PH-NOVARTISPH-NVSC2022PH019394

PATIENT
  Age: 40 Year
  Sex: Male

DRUGS (10)
  1. ENTRESTO [Suspect]
     Active Substance: SACUBITRIL\VALSARTAN
     Indication: Product used for unknown indication
     Dosage: 0.5 DOSAGE FORM, BID (200 MG HALF TABLET TWICE A DAY)
     Route: 048
     Dates: start: 20211117
  2. ENTRESTO [Suspect]
     Active Substance: SACUBITRIL\VALSARTAN
     Dosage: 0.5 DOSAGE FORM, BID (200 MG HALF TABLET TWICE A DAY)
     Route: 048
     Dates: start: 20211130
  3. ATORVASTATIN [Concomitant]
     Active Substance: ATORVASTATIN
     Indication: Product used for unknown indication
     Dosage: 1 DOSAGE FORM, QD (40 MG A DAY OR NIGHT)
     Route: 048
     Dates: start: 20211117
  4. VASTAREL [Concomitant]
     Active Substance: TRIMETAZIDINE DIHYDROCHLORIDE
     Indication: Product used for unknown indication
     Dosage: 1 DOSAGE FORM, BID (35 MG)
     Route: 048
     Dates: start: 20211117
  5. VASTAREL [Concomitant]
     Active Substance: TRIMETAZIDINE DIHYDROCHLORIDE
     Dosage: 1 DOSAGE FORM, BID (35 MG)
     Route: 048
     Dates: start: 20211130
  6. PLAVIX [Concomitant]
     Active Substance: CLOPIDOGREL BISULFATE
     Indication: Product used for unknown indication
     Dosage: 1 DOSAGE FORM, QD
     Route: 048
     Dates: start: 20211117
  7. PLAVIX [Concomitant]
     Active Substance: CLOPIDOGREL BISULFATE
     Dosage: 1 DOSAGE FORM, QD
     Route: 048
     Dates: start: 20211130
  8. LANOXIN [Concomitant]
     Active Substance: DIGOXIN
     Indication: Product used for unknown indication
     Dosage: 0.5 DOSAGE FORM (0.25 MG 1/2 TAB EVERY OTHER DAY)
     Route: 048
     Dates: start: 20211117
  9. LANOXIN [Concomitant]
     Active Substance: DIGOXIN
     Dosage: 0.5 DOSAGE FORM (0.25 MG 1/2 TAB EVERY OTHER DAY)
     Route: 048
     Dates: start: 20211130
  10. RENVELA [Concomitant]
     Active Substance: SEVELAMER CARBONATE
     Indication: Product used for unknown indication
     Dosage: UNK, TID
     Route: 048
     Dates: start: 20211117

REACTIONS (2)
  - COVID-19 [Unknown]
  - Wrong technique in product usage process [Unknown]

NARRATIVE: CASE EVENT DATE: 20211117
